FAERS Safety Report 16718049 (Version 1)
Quarter: 2019Q3

REPORT INFORMATION
  Report Type: Spontaneous
  Country: US (occurrence: US)
  Receive Date: 20190819
  Receipt Date: 20190819
  Transmission Date: 20191005
  Serious: No
  Sender: FDA-Public Use
  Company Number: US-BIOMARINAP-US-2019-125237

PATIENT
  Age: 35 Year
  Sex: Female

DRUGS (1)
  1. ALDURAZYME [Suspect]
     Active Substance: LARONIDASE
     Indication: MUCOPOLYSACCHARIDOSIS I
     Dosage: UNK
     Route: 041
     Dates: start: 20030703

REACTIONS (5)
  - Irritable bowel syndrome [Unknown]
  - Anxiety [Unknown]
  - Surgery [Unknown]
  - Hernia repair [Unknown]
  - Spinal fusion surgery [Unknown]
